FAERS Safety Report 8537153-X (Version None)
Quarter: 2012Q3

REPORT INFORMATION
  Report Type: 
  Country: None (occurrence: None)
  Receive Date: 20120725
  Receipt Date: 20120719
  Transmission Date: 20120928
  Serious: Yes (Other)
  Sender: FDA-Public Use
  Company Number: FR-ABBOTT-12P-056-0958572-00

PATIENT
  Age: 46 Year
  Sex: Female

DRUGS (2)
  1. SEVOFLURANE [Suspect]
     Indication: PRODUCT USED FOR UNKNOWN INDICATION
     Route: 055
  2. NITROUS OXIDE [Suspect]
     Indication: PRODUCT USED FOR UNKNOWN INDICATION
     Route: 055

REACTIONS (8)
  - CENTRAL NERVOUS SYSTEM LESION [None]
  - NUCLEAR MAGNETIC RESONANCE IMAGING BRAIN ABNORMAL [None]
  - PARAESTHESIA [None]
  - MYELITIS [None]
  - OCCUPATIONAL EXPOSURE TO TOXIC AGENT [None]
  - WHIPPLE'S DISEASE [None]
  - CEREBROVASCULAR ACCIDENT [None]
  - NEUROTOXICITY [None]
